FAERS Safety Report 6157582-1 (Version None)
Quarter: 2009Q2

REPORT INFORMATION
  Report Type: 
  Country: None (occurrence: None)
  Receive Date: 20090414
  Receipt Date: 20090401
  Transmission Date: 20091009
  Serious: Yes (Other)
  Sender: FDA-Public Use
  Company Number: CHPA2009US09006

PATIENT
  Sex: Female

DRUGS (1)
  1. KERI ADVANCED(NCH) (UNKNOWN) LOTION [Suspect]

REACTIONS (2)
  - CAUSTIC INJURY [None]
  - SCAR [None]
